FAERS Safety Report 19155188 (Version 37)
Quarter: 2024Q4

REPORT INFORMATION
  Report Type: Spontaneous
  Country: CA (occurrence: CA)
  Receive Date: 20210420
  Receipt Date: 20241226
  Transmission Date: 20250115
  Serious: Yes (Other)
  Sender: CELLTRION
  Company Number: CA-CELLTRION INC.-2021CA005316

PATIENT

DRUGS (37)
  1. INFLECTRA [Suspect]
     Active Substance: INFLIXIMAB-DYYB
     Indication: Crohn^s disease
     Dosage: 450 MG, Q 0, 2, 6, THEN EVERY 8 WEEKS
     Route: 042
     Dates: start: 20210325
  2. INFLECTRA [Suspect]
     Active Substance: INFLIXIMAB-DYYB
     Dosage: 450 MG, 0, 2, 6, THEN EVERY 8 WEEKS
     Route: 042
     Dates: start: 20210409
  3. INFLECTRA [Suspect]
     Active Substance: INFLIXIMAB-DYYB
     Dosage: 450 MG, 0, 2, 6, THEN EVERY 8 WEEKS
     Route: 042
     Dates: start: 20210507
  4. INFLECTRA [Suspect]
     Active Substance: INFLIXIMAB-DYYB
     Dosage: 450 MG, 0, 2, 6, THEN EVERY 8 WEEKS
     Route: 042
     Dates: start: 20210706
  5. INFLECTRA [Suspect]
     Active Substance: INFLIXIMAB-DYYB
     Dosage: 450 MG, 0, 2, 6, THEN EVERY 8 WEEKS
     Route: 042
     Dates: start: 20210904
  6. INFLECTRA [Suspect]
     Active Substance: INFLIXIMAB-DYYB
     Dosage: 450 MG, 0, 2, 6, THEN EVERY 8 WEEKS
     Route: 042
     Dates: start: 20211026
  7. INFLECTRA [Suspect]
     Active Substance: INFLIXIMAB-DYYB
     Dosage: 450 MG, 0, 2, 6, THEN EVERY 8 WEEKS
     Route: 042
     Dates: start: 20211220
  8. INFLECTRA [Suspect]
     Active Substance: INFLIXIMAB-DYYB
     Dosage: 450 MG, 0, 2, 6, THEN EVERY 8 WEEKS
     Route: 042
     Dates: start: 20220216
  9. INFLECTRA [Suspect]
     Active Substance: INFLIXIMAB-DYYB
     Dosage: 450 MG, 0, 2, 6, THEN EVERY 8 WEEKS
     Route: 042
     Dates: start: 20220422
  10. INFLECTRA [Suspect]
     Active Substance: INFLIXIMAB-DYYB
     Dosage: 450 MG, 0, 2, 6, THEN EVERY 8 WEEKS
     Route: 042
     Dates: start: 20220615
  11. INFLECTRA [Suspect]
     Active Substance: INFLIXIMAB-DYYB
     Dosage: 450 MG, 0, 2, 6, THEN EVERY 8 WEEKS
     Route: 042
     Dates: start: 20220809, end: 20220809
  12. INFLECTRA [Suspect]
     Active Substance: INFLIXIMAB-DYYB
     Dosage: 500 MG (PATIENT WAS PRESCRIBED 450) 0, 2, 6, THEN EVERY 8 WEEKS
     Route: 042
     Dates: start: 20221005, end: 20221005
  13. INFLECTRA [Suspect]
     Active Substance: INFLIXIMAB-DYYB
     Dosage: 450 MG, Q 0, 2, 6, THEN EVERY 8 WEEKS
     Route: 042
     Dates: start: 20221130
  14. INFLECTRA [Suspect]
     Active Substance: INFLIXIMAB-DYYB
     Dosage: 535 MG, AFTER 8 WEEKS 6 DAYS (PRESCRIBED EVERY 6 WEEKS)
     Route: 042
     Dates: start: 20230131
  15. INFLECTRA [Suspect]
     Active Substance: INFLIXIMAB-DYYB
     Dosage: 535 MG, EVERY 6 WEEKS
     Route: 042
     Dates: start: 20230313
  16. INFLECTRA [Suspect]
     Active Substance: INFLIXIMAB-DYYB
     Dosage: 535 MG, EVERY 6 WEEKS
     Route: 042
     Dates: start: 20230426
  17. INFLECTRA [Suspect]
     Active Substance: INFLIXIMAB-DYYB
     Dosage: 535 MG, EVERY 6 WEEKS
     Route: 042
     Dates: start: 20230609
  18. INFLECTRA [Suspect]
     Active Substance: INFLIXIMAB-DYYB
     Dosage: 535 MG, EVERY 6 WEEKS
     Route: 042
     Dates: start: 20230720
  19. INFLECTRA [Suspect]
     Active Substance: INFLIXIMAB-DYYB
     Dosage: 535 MG, EVERY 6 WEEKS
     Route: 042
     Dates: start: 20230830
  20. INFLECTRA [Suspect]
     Active Substance: INFLIXIMAB-DYYB
     Dosage: 535 MG, EVERY 6 WEEKS
     Route: 042
     Dates: start: 20231014
  21. INFLECTRA [Suspect]
     Active Substance: INFLIXIMAB-DYYB
     Dosage: 535 MG, AFTER 5 WEEKS AND 4 DAYS (PRESCRIBED EVERY 6 WEEKS)
     Route: 042
     Dates: start: 20231122
  22. INFLECTRA [Suspect]
     Active Substance: INFLIXIMAB-DYYB
     Dosage: 535 MG, EVERY 6 WEEKS
     Route: 042
     Dates: start: 20240103
  23. INFLECTRA [Suspect]
     Active Substance: INFLIXIMAB-DYYB
     Dosage: 535 MG, EVERY 6 WEEKS
     Route: 042
     Dates: start: 20240214
  24. INFLECTRA [Suspect]
     Active Substance: INFLIXIMAB-DYYB
     Dosage: 535 MG, EVERY 6 WEEKS
     Route: 042
     Dates: start: 20240327
  25. INFLECTRA [Suspect]
     Active Substance: INFLIXIMAB-DYYB
     Dosage: 535 MG, EVERY 6 WEEKS
     Route: 042
     Dates: start: 20240518
  26. INFLECTRA [Suspect]
     Active Substance: INFLIXIMAB-DYYB
     Dosage: 535 MG, EVERY 6 WEEKS
     Route: 042
     Dates: start: 20240629
  27. INFLECTRA [Suspect]
     Active Substance: INFLIXIMAB-DYYB
     Dosage: 535 MG, EVERY 6 WEEKS
     Route: 042
     Dates: start: 20240809
  28. INFLECTRA [Suspect]
     Active Substance: INFLIXIMAB-DYYB
     Dosage: 535 MG, EVERY 6 WEEKS
     Route: 042
     Dates: start: 20240920
  29. INFLECTRA [Suspect]
     Active Substance: INFLIXIMAB-DYYB
     Dosage: 535 MG, AFTER 4 WEEKS 5 DAYS (PRESCRIBED EVERY 4 WEEKS)
     Route: 042
     Dates: start: 20241023
  30. INFLECTRA [Suspect]
     Active Substance: INFLIXIMAB-DYYB
     Dosage: 535 MG, 3 WEEKS AND 5 DAYS, (EVERY 4 WEEKS)
     Route: 042
     Dates: start: 20241118
  31. INFLECTRA [Suspect]
     Active Substance: INFLIXIMAB-DYYB
     Dosage: 535 MG, 3 WEEKS AND 5 DAYS, (EVERY 4 WEEKS)
     Route: 042
     Dates: start: 20241118
  32. INFLECTRA [Suspect]
     Active Substance: INFLIXIMAB-DYYB
     Dosage: 535 MG (535 MG, EVERY 4 WEEKS)
     Route: 042
     Dates: start: 20241217
  33. FLEXERIL [Concomitant]
     Active Substance: CYCLOBENZAPRINE HYDROCHLORIDE
     Dosage: UNK
  34. GABAPENTIN [Concomitant]
     Active Substance: GABAPENTIN
     Dosage: UNK
  35. NEXPLANON [Concomitant]
     Active Substance: ETONOGESTREL
     Dosage: UNK
  36. PANTOPRAZOLE SODIUM [Concomitant]
     Active Substance: PANTOPRAZOLE SODIUM
     Dosage: UNK
  37. ACETAMINOPHEN\TRAMADOL [Concomitant]
     Active Substance: ACETAMINOPHEN\TRAMADOL
     Dosage: UNK

REACTIONS (21)
  - Condition aggravated [Not Recovered/Not Resolved]
  - Pyoderma gangrenosum [Recovered/Resolved]
  - Hyperhidrosis [Unknown]
  - Nausea [Not Recovered/Not Resolved]
  - Eczema [Unknown]
  - Hunger [Unknown]
  - Arthralgia [Not Recovered/Not Resolved]
  - Mouth ulceration [Recovered/Resolved]
  - Aphthous ulcer [Recovered/Resolved]
  - Cough [Unknown]
  - Headache [Unknown]
  - Peripheral swelling [Unknown]
  - Musculoskeletal stiffness [Unknown]
  - Weight increased [Not Recovered/Not Resolved]
  - Weight decreased [Unknown]
  - Malaise [Unknown]
  - Off label use [Unknown]
  - Off label use [Unknown]
  - Off label use [Unknown]
  - Intentional product use issue [Unknown]
  - Inappropriate schedule of product administration [Unknown]

NARRATIVE: CASE EVENT DATE: 20210101
